FAERS Safety Report 6000125-3 (Version None)
Quarter: 2008Q4

REPORT INFORMATION
  Report Type: 
  Country: None (occurrence: None)
  Receive Date: 20081215
  Receipt Date: 20080104
  Transmission Date: 20090506
  Serious: No
  Sender: FDA-Public Use
  Company Number: US-AMGEN-KDL233183

PATIENT
  Sex: Female

DRUGS (12)
  1. ENBREL [Suspect]
     Indication: RHEUMATOID ARTHRITIS
     Route: 058
     Dates: start: 20060720, end: 20070918
  2. METOPROLOL [Concomitant]
     Dates: start: 20020822
  3. NORVASC [Concomitant]
     Dates: start: 20040319
  4. MOBIC [Concomitant]
     Dates: start: 20030109
  5. PREMARIN [Concomitant]
     Dates: start: 20010413
  6. PREVACID [Concomitant]
     Dates: start: 19960520
  7. FLONASE [Concomitant]
  8. ASPIRIN [Concomitant]
     Dates: start: 20020822
  9. NITROGLYCERIN [Concomitant]
     Dates: start: 20040318
  10. IMDUR [Concomitant]
     Dates: start: 20060713
  11. TRAMADOL HCL [Concomitant]
     Dates: start: 20060731
  12. NEURONTIN [Concomitant]

REACTIONS (4)
  - ASTHENIA [None]
  - LETHARGY [None]
  - MALAISE [None]
  - RHEUMATOID ARTHRITIS [None]
